FAERS Safety Report 8233974-1 (Version None)
Quarter: 2012Q1

REPORT INFORMATION
  Report Type: 
  Country: None (occurrence: None)
  Receive Date: 20120326
  Receipt Date: 20120313
  Transmission Date: 20120608
  Serious: Yes (Other)
  Sender: FDA-Public Use
  Company Number: DE-CELGENEUS-062-C5013-12022626

PATIENT
  Age: 57 Year
  Sex: Male
  Weight: 90 kg

DRUGS (1)
  1. LENALIDOMIDE [Suspect]
     Route: 048
     Dates: start: 20120110, end: 20120206

REACTIONS (1)
  - LUNG ADENOCARCINOMA [None]
